FAERS Safety Report 4555980-0 (Version None)
Quarter: 2005Q1

REPORT INFORMATION
  Report Type: 
  Country: None (occurrence: None)
  Receive Date: 20050119
  Receipt Date: 20050113
  Transmission Date: 20050727
  Serious: Yes (Hospitalization)
  Sender: FDA-Public Use
  Company Number: PHBS2005FR00851

PATIENT
  Age: 97 Year
  Sex: Male

DRUGS (7)
  1. FUROSEMIDE [Concomitant]
     Dosage: 10 MG/DAY
  2. AMLODIPINE [Concomitant]
     Dosage: 5 MG/DAY
  3. TRINITRINE [Concomitant]
  4. LYSINE ACETYLSALICYLATE [Concomitant]
  5. TIMOLOL MALEATE [Concomitant]
     Dates: end: 20041130
  6. LOPRESSOR [Suspect]
     Indication: HYPERTENSION
     Dates: end: 20041101
  7. LOPRESSOR [Suspect]
     Dosage: UNK, UNK
     Route: 048
     Dates: start: 20041114, end: 20041123

REACTIONS (6)
  - CHOLELITHIASIS [None]
  - FALL [None]
  - HEART RATE DECREASED [None]
  - SINUS BRADYCARDIA [None]
  - SOMNOLENCE [None]
  - SYNCOPE [None]
